FAERS Safety Report 9593004 (Version 2)
Quarter: 2013Q4

REPORT INFORMATION
  Report Type: Spontaneous
  Country: GB (occurrence: GB)
  Receive Date: 20131004
  Receipt Date: 20131004
  Transmission Date: 20140711
  Serious: Yes (Hospitalization, Other)
  Sender: FDA-Public Use
  Company Number: GB-ABBVIE-12P-167-0999606-00

PATIENT
  Age: 41 Year
  Sex: Female
  Weight: 76 kg

DRUGS (14)
  1. CHIROCAINE [Suspect]
     Indication: LOCAL ANAESTHESIA
     Dosage: INDICATION: INTERSCALENE AND SUPERFICIAL CERVICAL PLEXUS BLOCK
     Route: 058
     Dates: start: 20120913, end: 20120913
  2. CHIROCAINE [Suspect]
     Route: 058
     Dates: start: 20120913, end: 20120913
  3. ATRACURIUM [Concomitant]
     Indication: GENERAL ANAESTHESIA
     Dates: start: 20120913, end: 20120913
  4. CEFTRIAXONE [Concomitant]
     Indication: GENERAL ANAESTHESIA
     Dates: start: 20120913, end: 20120913
  5. CHLORHEXIDINE [Concomitant]
     Indication: ANAESTHESIA
     Dates: start: 20120913, end: 20120913
  6. DEXAMETHASONE [Concomitant]
     Indication: GENERAL ANAESTHESIA
     Dates: start: 20120913, end: 20120913
  7. FENTANYL [Concomitant]
     Indication: ANAESTHESIA
     Dates: start: 20120913, end: 20120913
  8. FENTANYL [Concomitant]
     Indication: GENERAL ANAESTHESIA
     Dates: start: 20120913, end: 20120913
  9. GLYCOPYRROLATE-NEOSTIGMINE [Concomitant]
     Indication: ANAESTHESIA REVERSAL
     Dates: start: 20120913
  10. LIGNOCAINE [Concomitant]
     Indication: ANAESTHESIA
     Route: 058
     Dates: start: 20120913, end: 20120913
  11. MIDAZOLAM [Concomitant]
     Indication: ANAESTHESIA
     Dates: start: 20120913, end: 20120913
  12. ONDANSETRON [Concomitant]
     Indication: GENERAL ANAESTHESIA
     Dates: start: 20120913, end: 20120913
  13. PROPOFOL [Concomitant]
     Indication: GENERAL ANAESTHESIA
     Dates: start: 20120913, end: 20120913
  14. SEVOFLURANE [Concomitant]
     Indication: GENERAL ANAESTHESIA
     Dates: start: 20120913, end: 20120913

REACTIONS (9)
  - Delayed recovery from anaesthesia [Recovered/Resolved]
  - Toxicity to various agents [Recovered/Resolved]
  - Eye movement disorder [Recovered/Resolved]
  - Strabismus [Recovered/Resolved]
  - Blepharospasm [Recovered/Resolved]
  - Coma scale abnormal [Recovered/Resolved]
  - Heart rate increased [Recovered/Resolved]
  - Hypokinesia [Recovered/Resolved]
  - Respiratory rate increased [Recovered/Resolved]
